FAERS Safety Report 23601172 (Version 1)
Quarter: 2024Q1

REPORT INFORMATION
  Report Type: Spontaneous
  Country: CN (occurrence: CN)
  Receive Date: 20240306
  Receipt Date: 20240306
  Transmission Date: 20240409
  Serious: Yes (Death, Other)
  Sender: FDA-Public Use
  Company Number: CN-STRIDES ARCOLAB LIMITED-2024SP002607

PATIENT
  Age: 12 Year
  Sex: Male

DRUGS (14)
  1. MYCOPHENOLATE MOFETIL [Suspect]
     Active Substance: MYCOPHENOLATE MOFETIL
     Indication: Prophylaxis against graft versus host disease
     Dosage: UNK
     Route: 065
  2. CYCLOSPORINE [Suspect]
     Active Substance: CYCLOSPORINE
     Indication: Prophylaxis against graft versus host disease
     Dosage: UNK
     Route: 065
  3. BUSULFAN [Suspect]
     Active Substance: BUSULFAN
     Indication: T-cell type acute leukaemia
     Dosage: 12.8 MILLIGRAM/KILOGRAM
     Route: 065
  4. BUSULFAN [Suspect]
     Active Substance: BUSULFAN
     Indication: Bone marrow conditioning regimen
  5. SEMUSTINE [Suspect]
     Active Substance: SEMUSTINE
     Indication: T-cell type acute leukaemia
     Dosage: 250 MILLIGRAM/SQ. METER
     Route: 065
  6. SEMUSTINE [Suspect]
     Active Substance: SEMUSTINE
     Indication: Bone marrow conditioning regimen
  7. CYCLOPHOSPHAMIDE [Suspect]
     Active Substance: CYCLOPHOSPHAMIDE
     Indication: T-cell type acute leukaemia
     Dosage: 120 MILLIGRAM/KILOGRAM
     Route: 065
  8. CYCLOPHOSPHAMIDE [Suspect]
     Active Substance: CYCLOPHOSPHAMIDE
     Indication: Bone marrow conditioning regimen
  9. TUCIDINOSTAT [Suspect]
     Active Substance: TUCIDINOSTAT
     Indication: T-cell type acute leukaemia
     Dosage: 0.5 MILLIGRAM/KILOGRAM
     Route: 065
  10. TUCIDINOSTAT [Suspect]
     Active Substance: TUCIDINOSTAT
     Indication: Bone marrow conditioning regimen
  11. FLUDARABINE [Suspect]
     Active Substance: FLUDARABINE PHOSPHATE
     Indication: T-cell type acute leukaemia
     Dosage: 120-150 MG/M2
     Route: 065
  12. FLUDARABINE [Suspect]
     Active Substance: FLUDARABINE PHOSPHATE
     Indication: Bone marrow conditioning regimen
  13. DECITABINE [Suspect]
     Active Substance: DECITABINE
     Indication: T-cell type acute leukaemia
     Dosage: UNK
     Route: 065
  14. DECITABINE [Suspect]
     Active Substance: DECITABINE
     Indication: Bone marrow conditioning regimen

REACTIONS (2)
  - Death [Fatal]
  - Chronic graft versus host disease [Unknown]
